FAERS Safety Report 5333122-1 (Version None)
Quarter: 2007Q2

REPORT INFORMATION
  Report Type: 
  Country: None (occurrence: None)
  Receive Date: 20070524
  Receipt Date: 20070522
  Transmission Date: 20071010
  Serious: Yes (Other)
  Sender: FDA-Public Use
  Company Number: FR-ELI_LILLY_AND_COMPANY-FR200702003941

PATIENT
  Age: 21 Year
  Sex: Female

DRUGS (3)
  1. ZYPREXA [Suspect]
     Indication: BRIEF PSYCHOTIC DISORDER WITH MARKED STRESSORS
     Dosage: 20 MG, DAILY (1/D)
     Route: 048
     Dates: start: 20070209, end: 20070212
  2. ZOVIRAX                                 /GRC/ [Concomitant]
     Indication: ENCEPHALITIS
     Dosage: UNK, UNKNOWN
     Route: 065
     Dates: start: 20070209
  3. URBANYL /FRA/ [Concomitant]
     Indication: EPILEPSY
     Dosage: UNK, UNKNOWN
     Route: 065
     Dates: start: 20070209

REACTIONS (3)
  - LEUKOCYTOSIS [None]
  - RENAL FAILURE [None]
  - RHABDOMYOLYSIS [None]
